FAERS Safety Report 10621594 (Version 1)
Quarter: 2014Q4

REPORT INFORMATION
  Report Type: Spontaneous
  Country: US (occurrence: None)
  Receive Date: 20141201
  Receipt Date: 20141201
  Transmission Date: 20150529
  Serious: Yes (Other)
  Sender: FDA-Public Use
  Company Number: None

PATIENT
  Age: 57 Year
  Sex: Female
  Weight: 70.31 kg

DRUGS (1)
  1. LORAZEPAM. [Suspect]
     Active Substance: LORAZEPAM
     Indication: ANXIETY
     Route: 048
     Dates: start: 20141126, end: 20141126

REACTIONS (8)
  - Throat tightness [None]
  - Product quality issue [None]
  - Tremor [None]
  - Anxiety [None]
  - Palpitations [None]
  - Respiratory rate decreased [None]
  - Feeling jittery [None]
  - Product substitution issue [None]

NARRATIVE: CASE EVENT DATE: 20141126
